FAERS Safety Report 17398824 (Version 1)
Quarter: 2020Q1

REPORT INFORMATION
  Report Type: Report from Study
  Country: IT (occurrence: IT)
  Receive Date: 20200210
  Receipt Date: 20200210
  Transmission Date: 20200409
  Serious: Yes (Other)
  Sender: FDA-Public Use
  Company Number: IT-MYLANLABS-2020M1014179

PATIENT
  Age: 62 Year
  Sex: Female

DRUGS (3)
  1. DEPALGOS [Suspect]
     Active Substance: ACETAMINOPHEN\OXYCODONE HYDROCHLORIDE
     Indication: PRODUCT USED FOR UNKNOWN INDICATION
     Dosage: 220 MILLIGRAM, TOTAL
     Route: 048
     Dates: start: 20190809, end: 20190809
  2. RIVOTRIL [Concomitant]
     Active Substance: CLONAZEPAM
     Dosage: 10 GTT DROPS, TOTAL
     Dates: start: 20190809, end: 20190809
  3. GABAPENTIN. [Suspect]
     Active Substance: GABAPENTIN
     Indication: PRODUCT USED FOR UNKNOWN INDICATION
     Dosage: 3300 MILLIGRAM, QD
     Route: 048
     Dates: start: 20190809, end: 20190809

REACTIONS (5)
  - Intentional self-injury [Unknown]
  - Substance abuse [Recovering/Resolving]
  - Confusional state [Recovering/Resolving]
  - Speech disorder [Recovering/Resolving]
  - Sedation [Recovering/Resolving]

NARRATIVE: CASE EVENT DATE: 20190809
